FAERS Safety Report 25867565 (Version 1)
Quarter: 2025Q4

REPORT INFORMATION
  Report Type: Spontaneous
  Country: CH (occurrence: CH)
  Receive Date: 20251001
  Receipt Date: 20251001
  Transmission Date: 20260117
  Serious: Yes (Hospitalization)
  Sender: BOEHRINGER INGELHEIM
  Company Number: None

PATIENT
  Age: 78 Year
  Sex: Female

DRUGS (10)
  1. JARDIANCE [Suspect]
     Active Substance: EMPAGLIFLOZIN
     Indication: Type 2 diabetes mellitus
     Dosage: 1 SEPARATED DOSES
     Dates: start: 20250401, end: 20250531
  2. JANUMET [Suspect]
     Active Substance: METFORMIN HYDROCHLORIDE\SITAGLIPTIN PHOSPHATE
     Indication: Type 2 diabetes mellitus
     Dosage: METFORMIN HYDROCHLORIDE : STRENGTH 1000 MG ?SITAGLIPTIN PHOSPHATE MONOHYDRATE : STRENGTH 50 MG
     Dates: end: 20250531
  3. Transipeg [Concomitant]
     Indication: Product used for unknown indication
     Dosage: 1 SEPARATED DOSES
  4. ATORVASTATIN [Concomitant]
     Active Substance: ATORVASTATIN
     Indication: Product used for unknown indication
     Dosage: 1 SEPARATED DOSES
  5. EUTHYROX [Concomitant]
     Active Substance: LEVOTHYROXINE SODIUM
     Indication: Product used for unknown indication
     Dosage: 1 SEPARATED DOSES
  6. TRELEGY ELLIPTA [Concomitant]
     Active Substance: FLUTICASONE FUROATE\UMECLIDINIUM BROMIDE\VILANTEROL TRIFENATATE
     Indication: Product used for unknown indication
     Dosage: TRELEGY ELLIPTA 22/55/92 MCG
  7. PANTOPRAZOLE SODIUM [Concomitant]
     Active Substance: PANTOPRAZOLE SODIUM
     Indication: Product used for unknown indication
     Dosage: 1 SEPARATED DOSES
  8. Valsartan axapharm [Concomitant]
     Indication: Product used for unknown indication
     Dosage: 1 SEPARATED DOSES
  9. Vitamin D3 spirig HC [Concomitant]
     Indication: Product used for unknown indication
     Dosage: 1 SEPARATED DOSES
  10. ASPIRIN [Concomitant]
     Active Substance: ASPIRIN
     Indication: Product used for unknown indication
     Dosage: 1 SEPARATED DOSES

REACTIONS (1)
  - Metabolic acidosis [Recovering/Resolving]

NARRATIVE: CASE EVENT DATE: 20250531
